FAERS Safety Report 7103606-4 (Version None)
Quarter: 2010Q4

REPORT INFORMATION
  Report Type: 
  Country: None (occurrence: None)
  Receive Date: 20101115
  Receipt Date: 20091005
  Transmission Date: 20110411
  Serious: No
  Sender: FDA-Public Use
  Company Number: US-KINGPHARMUSA00001-K200901238

PATIENT

DRUGS (1)
  1. LEVOXYL [Suspect]
     Dosage: UNK MCG, UNK
     Route: 048

REACTIONS (2)
  - DYSGEUSIA [None]
  - ORAL DISCOMFORT [None]
